FAERS Safety Report 9709645 (Version 2)
Quarter: 2013Q4

REPORT INFORMATION
  Report Type: Report from Study
  Country: VE (occurrence: VE)
  Receive Date: 20131126
  Receipt Date: 20131203
  Transmission Date: 20140711
  Serious: Yes (Hospitalization)
  Sender: FDA-Public Use
  Company Number: PHHY2013VE135632

PATIENT
  Age: 53 Year
  Sex: Female

DRUGS (10)
  1. ACLASTA [Suspect]
     Indication: OSTEOPOROSIS
     Dosage: 5 MG, ANNUALLY
     Route: 042
     Dates: start: 201012
  2. ACLASTA [Suspect]
     Dosage: 5 MG, ANNUALLY
     Route: 042
     Dates: start: 201205
  3. ACLASTA [Suspect]
     Dosage: 5 MG, ANNUALLY
     Route: 042
     Dates: start: 201305
  4. PROTELOS [Concomitant]
     Indication: OSTEOPOROSIS
     Dosage: UNK UKN, UNK
     Route: 048
  5. VARTALON [Concomitant]
     Indication: OSTEOPOROSIS
     Dosage: UNK UKN, UNK
     Route: 048
  6. LYRICA [Concomitant]
     Dosage: UNK UKN, UNK
     Route: 048
  7. CALCIO                             /00944201/ [Concomitant]
     Indication: OSTEOPOROSIS
     Dosage: UNK UKN, UNK
     Route: 048
  8. CLARITHROMYCIN [Concomitant]
     Dosage: UNK UKN, UNK
  9. ATORVASTATINA [Concomitant]
     Route: 048
  10. OMEPRAZOLE [Concomitant]
     Indication: GASTRIC DISORDER
     Route: 048

REACTIONS (7)
  - Intervertebral disc displacement [Unknown]
  - Myocardial ischaemia [Recovering/Resolving]
  - Infarction [Recovered/Resolved]
  - Myocardial infarction [Unknown]
  - Osteoarthritis [Not Recovered/Not Resolved]
  - Pyrexia [Recovered/Resolved]
  - Chills [Recovered/Resolved]
